FAERS Safety Report 25477236 (Version 3)
Quarter: 2025Q3

REPORT INFORMATION
  Report Type: Spontaneous
  Country: JP (occurrence: JP)
  Receive Date: 20250625
  Receipt Date: 20250711
  Transmission Date: 20251021
  Serious: No
  Sender: AMGEN
  Company Number: JP-KYOWAKIRIN-2025KK011766

PATIENT

DRUGS (1)
  1. DARBEPOETIN ALFA [Suspect]
     Active Substance: DARBEPOETIN ALFA
     Indication: Product used for unknown indication
     Dosage: 60 UG, 1X/MONTH
     Route: 065

REACTIONS (1)
  - Intercepted product prescribing error [Unknown]
